FAERS Safety Report 18438780 (Version 1)
Quarter: 2020Q4

REPORT INFORMATION
  Report Type: Spontaneous
  Country: US (occurrence: US)
  Receive Date: 20201029
  Receipt Date: 20201029
  Transmission Date: 20210114
  Serious: Yes (Other)
  Sender: FDA-Public Use
  Company Number: US-DRREDDYS-USA/USA/20/0128501

PATIENT
  Age: 30 Year
  Sex: Male

DRUGS (2)
  1. NALOXONE HYDROCHLORIDE. [Suspect]
     Active Substance: NALOXONE HYDROCHLORIDE
     Indication: DEPRESSED LEVEL OF CONSCIOUSNESS
     Route: 042
  2. NALOXONE HYDROCHLORIDE. [Suspect]
     Active Substance: NALOXONE HYDROCHLORIDE
     Route: 042

REACTIONS (1)
  - Pulmonary oedema [Recovered/Resolved]
